FAERS Safety Report 10049829 (Version 2)
Quarter: 2015Q1

REPORT INFORMATION
  Report Type: Spontaneous
  Country: IN (occurrence: IN)
  Receive Date: 20140401
  Receipt Date: 20140401
  Transmission Date: 20150720
  Serious: Yes (Hospitalization)
  Sender: FDA-Public Use
  Company Number: IN-MYLANLABS-2014S1006598

PATIENT
  Age: 27 Year
  Sex: Female

DRUGS (5)
  1. PHENYTOIN. [Interacting]
     Active Substance: PHENYTOIN
     Indication: CONVULSION PROPHYLAXIS
     Dosage: 300MG DAILY
     Route: 048
  2. CEFTRIAXONE. [Interacting]
     Active Substance: CEFTRIAXONE
     Route: 065
  3. DICLOFENAC [Suspect]
     Active Substance: DICLOFENAC
     Route: 065
  4. PHENYTOIN. [Interacting]
     Active Substance: PHENYTOIN
     Indication: CONVULSION PROPHYLAXIS
     Dosage: 100MG GIVEN AT MORE THAN 50 MG/MIN
     Route: 042
  5. ALPRAZOLAM. [Concomitant]
     Active Substance: ALPRAZOLAM
     Dosage: 0.5MG TAKEN TWICE; NIGHT PRIOR TO SURGERY AND SURGERY MORNING
     Route: 065

REACTIONS (2)
  - Bradyarrhythmia [Recovered/Resolved]
  - Drug interaction [Recovered/Resolved]
